FAERS Safety Report 5444181-X (Version None)
Quarter: 2007Q3

REPORT INFORMATION
  Report Type: 
  Country: None (occurrence: None)
  Receive Date: 20070904
  Receipt Date: 20070904
  Transmission Date: 20080115
  Serious: Yes (Hospitalization)
  Sender: FDA-Public Use
  Company Number: None

PATIENT
  Age: 78 Year
  Sex: Female
  Weight: 45.3597 kg

DRUGS (4)
  1. ULTRAM ER [Suspect]
     Dosage: 200 MG ONCE PO
     Route: 048
  2. LYRICA [Suspect]
     Dosage: 50 MG
  3. DICLOFENAC [Suspect]
     Indication: OEDEMA PERIPHERAL
     Dosage: 2X/DAY PO
     Route: 048
  4. ZOCOR [Suspect]
     Indication: NEUROPATHY PERIPHERAL

REACTIONS (5)
  - ASTHENIA [None]
  - DISORIENTATION [None]
  - HYPERHIDROSIS [None]
  - NEUROPATHY PERIPHERAL [None]
  - POOR QUALITY DRUG ADMINISTERED [None]
